FAERS Safety Report 13163099 (Version 1)
Quarter: 2017Q1

REPORT INFORMATION
  Report Type: Report from Study
  Country: BR (occurrence: BR)
  Receive Date: 20170130
  Receipt Date: 20170130
  Transmission Date: 20170428
  Serious: Yes (Other)
  Sender: FDA-Public Use
  Company Number: BR-ALEXION PHARMACEUTICALS INC.-A201610861

PATIENT
  Age: 58 Year
  Sex: Male

DRUGS (2)
  1. SOLIRIS [Suspect]
     Active Substance: ECULIZUMAB
     Dosage: 900 MG, Q2W
     Route: 042
     Dates: start: 20150119
  2. SOLIRIS [Suspect]
     Active Substance: ECULIZUMAB
     Indication: PAROXYSMAL NOCTURNAL HAEMOGLOBINURIA
     Dosage: 600 MG, QW
     Route: 042
     Dates: start: 20141219, end: 20150112

REACTIONS (7)
  - Ocular icterus [Unknown]
  - Asthenia [Unknown]
  - Haematocrit decreased [Unknown]
  - Vomiting [Unknown]
  - Haemoglobin decreased [Unknown]
  - Haematuria [Unknown]
  - Reticulocyte count increased [Unknown]

NARRATIVE: CASE EVENT DATE: 20161128
